FAERS Safety Report 10177885 (Version 2)
Quarter: 2014Q2

REPORT INFORMATION
  Report Type: Report from Study
  Country: NL (occurrence: NL)
  Receive Date: 20140516
  Receipt Date: 20140516
  Transmission Date: 20141212
  Serious: Yes (Hospitalization)
  Sender: FDA-Public Use
  Company Number: NL-ABBVIE-13P-114-1156500-00

PATIENT
  Age: 44 Year
  Sex: Female
  Weight: 87 kg

DRUGS (1)
  1. LUCRIN DEPOT [Suspect]
     Indication: LEIOMYOMA
     Dosage: 1/ONCE EVERY 12 WEEKS
     Route: 058
     Dates: start: 20130701, end: 20131002

REACTIONS (7)
  - Hysterectomy [Recovered/Resolved]
  - Metrorrhagia [Recovered/Resolved]
  - Hot flush [Recovered/Resolved]
  - Depressed mood [Recovered/Resolved]
  - Leiomyoma [Recovered/Resolved]
  - Hyperhidrosis [Recovered/Resolved]
  - Drug ineffective [Unknown]
